FAERS Safety Report 12069746 (Version 1)
Quarter: 2016Q1

REPORT INFORMATION
  Report Type: Spontaneous
  Country: US (occurrence: US)
  Receive Date: 20160211
  Receipt Date: 20160211
  Transmission Date: 20160526
  Serious: Yes (Hospitalization)
  Sender: FDA-Public Use
  Company Number: US-HOSPIRA-3159231

PATIENT
  Age: 12 Month
  Sex: Male
  Weight: 11 kg

DRUGS (8)
  1. ONDANSETRON [Concomitant]
     Active Substance: ONDANSETRON
     Indication: PRODUCT USED FOR UNKNOWN INDICATION
  2. BACTRIM [Concomitant]
     Active Substance: SULFAMETHOXAZOLE\TRIMETHOPRIM
     Indication: PRODUCT USED FOR UNKNOWN INDICATION
  3. PERIDEX                            /00016001/ [Concomitant]
     Indication: PRODUCT USED FOR UNKNOWN INDICATION
  4. CAMPTOSAR [Suspect]
     Active Substance: IRINOTECAN HYDROCHLORIDE
     Indication: NEOPLASM
     Dosage: 1.67 MG/KG/DOSE FOR PATIENTS LESS THAN 10 KG AND MAXIMUM DOSE OF 100 MG, OVER 90 MIN
     Route: 042
     Dates: start: 20160105, end: 20160105
  5. MIRALAX [Concomitant]
     Active Substance: POLYETHYLENE GLYCOL 3350
     Indication: PRODUCT USED FOR UNKNOWN INDICATION
  6. TORISEL [Suspect]
     Active Substance: TEMSIROLIMUS
     Indication: NEOPLASM
     Dosage: 1.2 MG/KG/DOSE FOR PATIENTS LESS THAN 10 KG, OVER 30 MIN ON DAYS 1 AND 8
     Route: 042
     Dates: start: 20160105, end: 20160105
  7. EMLA [Concomitant]
     Active Substance: LIDOCAINE\PRILOCAINE
     Indication: PRODUCT USED FOR UNKNOWN INDICATION
  8. VINCRISTINE SULFATE. [Suspect]
     Active Substance: VINCRISTINE SULFATE
     Indication: NEOPLASM
     Dosage: 0.05 MG/KG/DOSE FOR PATIENTS LESS THAN 10 KG AND MAXIMUM DOSE OF 2 MG, OVER 1 MIN
     Route: 042
     Dates: start: 20160105, end: 20160105

REACTIONS (3)
  - Intra-abdominal haemorrhage [Unknown]
  - Pelvic haemorrhage [Unknown]
  - Hepatic haemorrhage [Unknown]

NARRATIVE: CASE EVENT DATE: 20160106
